FAERS Safety Report 10052286 (Version 1)
Quarter: 2014Q2

REPORT INFORMATION
  Report Type: Spontaneous
  Country: GB (occurrence: GB)
  Receive Date: 20140402
  Receipt Date: 20140402
  Transmission Date: 20141212
  Serious: Yes (Other)
  Sender: FDA-Public Use
  Company Number: GB-ASTRAZENECA-2014SE20727

PATIENT
  Age: 32 Year
  Sex: Female

DRUGS (7)
  1. SYMBICORT [Suspect]
     Indication: ASTHMA
     Dosage: DOSE UNKNOWN TWO TIMES A DAY
     Route: 055
  2. ALENDRONIC ACID [Suspect]
     Route: 065
  3. FEXOFENADINE [Suspect]
     Indication: ASTHMA
     Route: 048
  4. MONTELUKAST SODIUM [Suspect]
     Route: 065
  5. SPIRIVA [Suspect]
     Indication: ASTHMA
     Dosage: TWICE A DAY
     Route: 065
  6. THEOPHYLLINE [Suspect]
     Indication: ASTHMA
     Route: 048
  7. XOLAIR [Suspect]
     Indication: ASTHMA
     Dosage: 600 MG IN THE FIRST TRIMESTER
     Route: 058

REACTIONS (3)
  - Maternal exposure during pregnancy [Unknown]
  - Haemorrhage [Recovered/Resolved]
  - Skin infection [Recovering/Resolving]
